FAERS Safety Report 6746180-4 (Version None)
Quarter: 2010Q2

REPORT INFORMATION
  Report Type: 
  Country: None (occurrence: None)
  Receive Date: 20100528
  Receipt Date: 20090819
  Transmission Date: 20101027
  Serious: Yes (Life-Threatening, Hospitalization)
  Sender: FDA-Public Use
  Company Number: US-ASTRAZENECA-2009SE08759

PATIENT
  Age: 69 Year
  Sex: Male

DRUGS (4)
  1. OMEPRAZOLE [Suspect]
  2. IRBESARTAN [Concomitant]
  3. HYDROCHLOROTHIAZIDE [Concomitant]
  4. EZETIMIBE [Concomitant]

REACTIONS (1)
  - TUBULOINTERSTITIAL NEPHRITIS [None]
